FAERS Safety Report 6300341-7 (Version None)
Quarter: 2009Q3

REPORT INFORMATION
  Report Type: 
  Country: None (occurrence: None)
  Receive Date: 20090805
  Receipt Date: 20090722
  Transmission Date: 20100115
  Serious: Yes (Hospitalization)
  Sender: FDA-Public Use
  Company Number: 430006K09USA

PATIENT
  Age: 44 Year
  Sex: Male

DRUGS (11)
  1. NOVANTRONE [Suspect]
     Indication: MULTIPLE SCLEROSIS
     Dosage: 1 IN 3 MONTHS, INTRAVENOUS
     Route: 042
     Dates: start: 20070910
  2. TIZANIDINE HCL [Concomitant]
  3. BACLOFEN [Concomitant]
  4. AMANTADINE HCL [Concomitant]
  5. PROTONIX [Concomitant]
  6. DILANTIN (PHENYTOIN /00017401/) [Concomitant]
  7. LEXAPRO [Concomitant]
  8. BACTRIM [Concomitant]
  9. LYRICA [Concomitant]
  10. PREDNISONE (PREDNISONE /00044701/) [Concomitant]
  11. UNSPECIFIED ANTIBIOTIC (ANTIBIOTICS) [Concomitant]

REACTIONS (3)
  - CATHETER RELATED COMPLICATION [None]
  - IMMUNOSUPPRESSION [None]
  - URINARY TRACT INFECTION [None]
